FAERS Safety Report 11229035 (Version 3)
Quarter: 2015Q3

REPORT INFORMATION
  Report Type: Spontaneous
  Country: US (occurrence: US)
  Receive Date: 20150630
  Receipt Date: 20150707
  Transmission Date: 20151125
  Serious: No
  Sender: FDA-Public Use
  Company Number: US-PFIZER INC-2015213021

PATIENT
  Age: 49 Year
  Sex: Female

DRUGS (1)
  1. TESTOSTERONE. [Suspect]
     Active Substance: TESTOSTERONE
     Dosage: UNK

REACTIONS (5)
  - Libido increased [Unknown]
  - Energy increased [Unknown]
  - Therapeutic response unexpected [Unknown]
  - Weight increased [Unknown]
  - Pre-existing condition improved [Unknown]
